FAERS Safety Report 12805381 (Version 2)
Quarter: 2017Q2

REPORT INFORMATION
  Report Type: Spontaneous
  Country: GB (occurrence: GB)
  Receive Date: 20161004
  Receipt Date: 20170520
  Transmission Date: 20170830
  Serious: Yes (Death, Other)
  Sender: FDA-Public Use
  Company Number: GB-ACCORD-044524

PATIENT
  Age: 56 Year
  Sex: Female
  Weight: 66.2 kg

DRUGS (14)
  1. LEVOTHYROXINE. [Concomitant]
     Active Substance: LEVOTHYROXINE
  2. QUININE [Concomitant]
     Active Substance: QUININE
  3. CETIRIZINE [Concomitant]
     Active Substance: CETIRIZINE HYDROCHLORIDE
  4. DABIGATRAN/DABIGATRAN ETEXILATE [Suspect]
     Active Substance: DABIGATRAN ETEXILATE
     Indication: PULMONARY EMBOLISM
     Route: 048
     Dates: start: 20140926, end: 20160811
  5. ZOPICLONE [Concomitant]
     Active Substance: ZOPICLONE
  6. TAZOCIN [Concomitant]
     Active Substance: PIPERACILLIN SODIUM\TAZOBACTAM SODIUM
     Route: 042
  7. CELECOXIB. [Suspect]
     Active Substance: CELECOXIB
     Indication: RHEUMATOID ARTHRITIS
     Route: 048
     Dates: start: 20151209
  8. MST CONTINUS [Concomitant]
     Active Substance: MORPHINE SULFATE
  9. OMEPRAZOLE. [Concomitant]
     Active Substance: OMEPRAZOLE
  10. FOLIC ACID. [Concomitant]
     Active Substance: FOLIC ACID
     Dates: start: 20160807
  11. PARACETAMOL [Concomitant]
     Active Substance: ACETAMINOPHEN
  12. METHOTREXATE. [Suspect]
     Active Substance: METHOTREXATE
     Indication: RHEUMATOID ARTHRITIS
     Route: 048
     Dates: start: 20151207, end: 20160804
  13. AMITRIPTYLINE [Concomitant]
     Active Substance: AMITRIPTYLINE
  14. ORAMORPH [Concomitant]
     Active Substance: MORPHINE SULFATE

REACTIONS (6)
  - Epistaxis [Not Recovered/Not Resolved]
  - Pneumonia [Fatal]
  - Pancytopenia [Not Recovered/Not Resolved]
  - Gastrointestinal haemorrhage [Not Recovered/Not Resolved]
  - Delirium [Unknown]
  - Poor venous access [None]

NARRATIVE: CASE EVENT DATE: 20160808
